FAERS Safety Report 5080455-2 (Version None)
Quarter: 2006Q3

REPORT INFORMATION
  Report Type: 
  Country: None (occurrence: None)
  Receive Date: 20060815
  Receipt Date: 20060807
  Transmission Date: 20061208
  Serious: Yes (Hospitalization, Other)
  Sender: FDA-Public Use
  Company Number: FR-BRISTOL-MYERS SQUIBB COMPANY-13470307

PATIENT
  Age: 53 Year
  Sex: Female

DRUGS (11)
  1. ZERIT [Suspect]
     Route: 048
     Dates: start: 20051110, end: 20060215
  2. SUSTIVA [Concomitant]
     Dosage: THERAPY STOPPED ON 06-DEC-2005,RESTARTED ON 08-DEC-2005, DECREASED TO 400 MG/DAY ON 11-APR-2006
     Route: 048
     Dates: start: 20051110
  3. RIMIFON [Concomitant]
     Dosage: ON 02-JAN-2006, 250 MG/DAY ORAL;200 MG/DAY APPROX. 20-JAN-2006 AND 150 MG/DAY 15-FEB-2006.
     Dates: start: 20051229
  4. EPIVIR [Concomitant]
  5. ANSATIPINE [Concomitant]
     Dates: start: 20051228
  6. MYAMBUTOL [Concomitant]
     Dates: start: 20051228
  7. PIRILENE [Concomitant]
     Dates: start: 20051228
  8. ZECLAR [Concomitant]
     Route: 042
     Dates: start: 20051229, end: 20060215
  9. RIMIFON [Concomitant]
     Route: 042
     Dates: start: 20051229
  10. VITAMIN B COMPLEX CAP [Concomitant]
  11. VITAMIN B6 [Concomitant]

REACTIONS (2)
  - NEUROPATHY [None]
  - TUBERCULOSIS [None]
